FAERS Safety Report 17546937 (Version 1)
Quarter: 2020Q1

REPORT INFORMATION
  Report Type: Spontaneous
  Country: GB (occurrence: GB)
  Receive Date: 20200316
  Receipt Date: 20200316
  Transmission Date: 20200409
  Serious: Yes (Other)
  Sender: FDA-Public Use
  Company Number: GB-TEVA-2020-GB-1200081

PATIENT
  Age: 29 Year
  Sex: Male

DRUGS (1)
  1. WARFARIN [Suspect]
     Active Substance: WARFARIN
     Route: 065

REACTIONS (8)
  - Vomiting [Unknown]
  - Headache [Unknown]
  - Subdural haemorrhage [Unknown]
  - International normalised ratio increased [Unknown]
  - Hyperkalaemia [Unknown]
  - Hypotension [Unknown]
  - Hypoglycaemia [Unknown]
  - Bradycardia [Unknown]
